FAERS Safety Report 5239756-7 (Version None)
Quarter: 2007Q1

REPORT INFORMATION
  Report Type: 
  Country: None (occurrence: None)
  Receive Date: 20070216
  Receipt Date: 20070207
  Transmission Date: 20070707
  Serious: Yes (Other)
  Sender: FDA-Public Use
  Company Number: GB-ELI_LILLY_AND_COMPANY-GB200612000570

PATIENT
  Age: 66 Year
  Sex: Male
  Weight: 104 kg

DRUGS (8)
  1. HUMATROPE [Suspect]
     Indication: HYPOTHALAMO-PITUITARY DISORDER
     Dosage: 4 D/F, UNK
     Dates: start: 20010101
  2. CO-DYDRAMOL [Concomitant]
  3. DIDRONEL [Concomitant]
  4. LACTULOSE [Concomitant]
  5. LEVOTHYROXINE SODIUM [Concomitant]
  6. PREDNISOLONE [Concomitant]
  7. TAMSULOSIN HCL [Concomitant]
  8. TESTOSTERONE [Concomitant]

REACTIONS (5)
  - CRANIOPHARYNGIOMA [None]
  - HYPOTHYROIDISM [None]
  - MALAISE [None]
  - PROSTATE CANCER [None]
  - SOMNOLENCE [None]
